FAERS Safety Report 10141781 (Version 1)
Quarter: 2014Q2

REPORT INFORMATION
  Report Type: Other
  Country: US (occurrence: US)
  Receive Date: 20140429
  Receipt Date: 20140429
  Transmission Date: 20141212
  Serious: Yes (Hospitalization)
  Sender: FDA-Public Use
  Company Number: US-ACORDA-ACO_103125_2014

PATIENT
  Age: 49 Year
  Sex: Female
  Weight: 49.89 kg

DRUGS (2)
  1. AMPYRA [Suspect]
     Indication: GAIT DISTURBANCE
     Dosage: UNK,UNK
     Route: 048
     Dates: start: 2014, end: 201404
  2. ANTI-ANXIETY [Concomitant]
     Indication: ANXIETY
     Dosage: UNK,UNK
     Route: 065

REACTIONS (5)
  - Dehydration [Recovering/Resolving]
  - Underweight [Unknown]
  - Urinary tract infection [Recovering/Resolving]
  - Headache [Recovering/Resolving]
  - Therapy cessation [Unknown]
